FAERS Safety Report 10032559 (Version 4)
Quarter: 2014Q2

REPORT INFORMATION
  Report Type: Report from Study
  Country: US (occurrence: US)
  Receive Date: 20140324
  Receipt Date: 20140417
  Transmission Date: 20141212
  Serious: Yes (Death, Hospitalization)
  Sender: FDA-Public Use
  Company Number: US-SANOFI-AVENTIS-2013SA072525

PATIENT
  Age: 53 Year
  Sex: Male

DRUGS (5)
  1. AUBAGIO [Suspect]
     Indication: RELAPSING-REMITTING MULTIPLE SCLEROSIS
     Route: 048
     Dates: start: 20130701, end: 20140303
  2. HYDROCODONE [Concomitant]
     Route: 048
     Dates: end: 20140308
  3. ATIVAN [Concomitant]
     Route: 048
     Dates: end: 20140308
  4. RESTORIL [Concomitant]
     Route: 048
     Dates: end: 20140308
  5. SOLUMEDROL [Concomitant]
     Route: 048
     Dates: end: 20140308

REACTIONS (11)
  - Death [Fatal]
  - Depression [Fatal]
  - Multiple sclerosis relapse [Not Recovered/Not Resolved]
  - Drug dose omission [Unknown]
  - Asthenia [Unknown]
  - Disorientation [Unknown]
  - Confusional state [Unknown]
  - Constipation [Not Recovered/Not Resolved]
  - Gait disturbance [Unknown]
  - Aphasia [Unknown]
  - Fall [Unknown]
